FAERS Safety Report 19159828 (Version 1)
Quarter: 2021Q2

REPORT INFORMATION
  Report Type: Spontaneous
  Country: DE (occurrence: DE)
  Receive Date: 20210420
  Receipt Date: 20210420
  Transmission Date: 20210717
  Serious: Yes (Hospitalization)
  Sender: FDA-Public Use
  Company Number: DE-MYLANLABS-2021M1017783

PATIENT
  Age: 73 Year
  Sex: Female
  Weight: 65 kg

DRUGS (1)
  1. OMEPRAZOLE MYLAN [Suspect]
     Active Substance: OMEPRAZOLE
     Indication: ABDOMINAL PAIN UPPER
     Dosage: 20 MILLIGRAM, AM
     Route: 048
     Dates: start: 20200403, end: 20210410

REACTIONS (5)
  - Diarrhoea [Recovering/Resolving]
  - Faeces discoloured [Unknown]
  - Haemoglobin decreased [Unknown]
  - Hypotension [Unknown]
  - Product physical issue [Unknown]

NARRATIVE: CASE EVENT DATE: 20210403
